FAERS Safety Report 6390555-2 (Version None)
Quarter: 2009Q4

REPORT INFORMATION
  Report Type: 
  Country: None (occurrence: None)
  Receive Date: 20091003
  Receipt Date: 20090924
  Transmission Date: 20100525
  Serious: Yes (Hospitalization)
  Sender: FDA-Public Use
  Company Number: CHPA2009JP19299

PATIENT
  Sex: Female

DRUGS (2)
  1. CLEMASTINE FUMARATE [Suspect]
     Dosage: ORAL
     Route: 048
     Dates: start: 20090914, end: 20090915
  2. CEFIXIME CHEWABLE [Suspect]
     Dosage: ORAL
     Route: 048
     Dates: start: 20090914, end: 20090915

REACTIONS (1)
  - HEPATIC FUNCTION ABNORMAL [None]
